FAERS Safety Report 19125569 (Version 1)
Quarter: 2021Q2

REPORT INFORMATION
  Report Type: Report from Study
  Country: US (occurrence: US)
  Receive Date: 20210412
  Receipt Date: 20210412
  Transmission Date: 20210717
  Serious: Yes (Other)
  Sender: FDA-Public Use
  Company Number: US-JNJFOC-20210403430

PATIENT
  Age: 7 Decade
  Sex: Male

DRUGS (1)
  1. MACITENTAN [Suspect]
     Active Substance: MACITENTAN
     Indication: PRODUCT USED FOR UNKNOWN INDICATION
     Route: 065
     Dates: start: 202103

REACTIONS (3)
  - Malaise [Unknown]
  - Asthenia [Unknown]
  - Liver disorder [Unknown]

NARRATIVE: CASE EVENT DATE: 202103
